FAERS Safety Report 9613929 (Version 3)
Quarter: 2013Q4

REPORT INFORMATION
  Report Type: Spontaneous
  Country: JP (occurrence: JP)
  Receive Date: 20131011
  Receipt Date: 20131023
  Transmission Date: 20140711
  Serious: Yes (Life-Threatening, Hospitalization)
  Sender: FDA-Public Use
  Company Number: JP-PFIZER INC-2013181740

PATIENT
  Age: 37 Year
  Sex: Female

DRUGS (10)
  1. LYRICA [Suspect]
     Indication: PAIN
     Dosage: 75 MG, 2X/DAY
     Route: 048
     Dates: start: 20110319, end: 20110404
  2. LYRICA [Suspect]
     Dosage: UNK
     Route: 048
     Dates: start: 20110829, end: 20111029
  3. LYRICA [Suspect]
     Dosage: UNK
     Dates: start: 20111222
  4. LYRICA [Suspect]
     Dosage: UNK
     Dates: start: 20120911
  5. LYRICA [Suspect]
     Dosage: UNK
     Dates: start: 20130111
  6. LYRICA [Suspect]
     Dosage: UNK
     Dates: start: 20130401
  7. OPAPROSMON [Suspect]
     Dosage: 5 UG, 6 TIMES DAILY
     Route: 048
     Dates: start: 20130111
  8. LIMAPROST ALFADEX [Suspect]
     Dosage: UNK
     Route: 048
     Dates: start: 20130401
  9. INFREE [Suspect]
     Dosage: 100 MG, 2X/DAY
     Route: 048
     Dates: start: 20130401
  10. ANPLAG [Concomitant]

REACTIONS (4)
  - Intentional overdose [Recovered/Resolved]
  - Suicide attempt [Recovered/Resolved]
  - Toxicity to various agents [Recovered/Resolved]
  - Loss of consciousness [Recovered/Resolved]
